FAERS Safety Report 5611290-1 (Version None)
Quarter: 2008Q1

REPORT INFORMATION
  Report Type: 
  Country: None (occurrence: None)
  Receive Date: 20080201
  Receipt Date: 20080121
  Transmission Date: 20080703
  Serious: Yes (Death, Other)
  Sender: FDA-Public Use
  Company Number: GB-PFIZER INC-2007002461

PATIENT
  Age: 9 Year
  Sex: Male
  Weight: 37.2 kg

DRUGS (7)
  1. VORICONAZOLE [Suspect]
     Indication: PROPHYLAXIS
  2. VORICONAZOLE [Interacting]
     Indication: FUNGAL INFECTION
  3. TACROLIMUS [Interacting]
     Indication: TRANSPLANT REJECTION
     Route: 048
     Dates: start: 20030101, end: 20061026
  4. CALCIUM GLUCONATE [Concomitant]
     Route: 048
     Dates: start: 20030101, end: 20061103
  5. OMEPRAZOLE [Concomitant]
     Route: 048
     Dates: start: 20030101, end: 20061103
  6. PREDNISOLONE [Concomitant]
     Route: 048
     Dates: start: 20030101, end: 20061102
  7. PROPRANOLOL [Concomitant]
     Route: 048
     Dates: start: 19981201, end: 20061026

REACTIONS (7)
  - DISSEMINATED INTRAVASCULAR COAGULATION [None]
  - DRUG INTERACTION [None]
  - DRUG LEVEL INCREASED [None]
  - LYMPHOPROLIFERATIVE DISORDER [None]
  - MALAISE [None]
  - RENAL FAILURE [None]
  - SEPSIS [None]
